FAERS Safety Report 8823303 (Version 2)
Quarter: 2012Q4

REPORT INFORMATION
  Report Type: Report from Study
  Country: US (occurrence: US)
  Receive Date: 20121003
  Receipt Date: 20121008
  Transmission Date: 20130627
  Serious: Yes (Other)
  Sender: FDA-Public Use
  Company Number: US-ROCHE-1133253

PATIENT
  Age: 85 Year
  Sex: Female

DRUGS (2)
  1. RANIBIZUMAB [Suspect]
     Indication: AGE-RELATED MACULAR DEGENERATION
     Route: 042
     Dates: start: 20071001, end: 20091001
  2. LUMIGAN [Concomitant]

REACTIONS (2)
  - Visual acuity reduced [Unknown]
  - Illusion [Unknown]
